FAERS Safety Report 23251349 (Version 1)
Quarter: 2023Q4

REPORT INFORMATION
  Report Type: Report from Study
  Country: US (occurrence: US)
  Receive Date: 20231201
  Receipt Date: 20231201
  Transmission Date: 20240109
  Serious: Yes (Death)
  Sender: FDA-Public Use
  Company Number: US-OTSUKA-2023_031092

PATIENT
  Age: 46 Year
  Sex: Female
  Weight: 108.86 kg

DRUGS (1)
  1. CEDAZURIDINE\DECITABINE [Suspect]
     Active Substance: CEDAZURIDINE\DECITABINE
     Indication: Immune thrombocytopenia
     Dosage: 1 DF (35 MG DECITABINE + 100 MG CEDAZURIDINE) DAILY ON DAYS 1 THOUGH 5 OF EACH 28 DAY CYCLE
     Route: 048

REACTIONS (2)
  - Death [Fatal]
  - Product use in unapproved indication [Unknown]

NARRATIVE: CASE EVENT DATE: 20231006
